FAERS Safety Report 24719082 (Version 3)
Quarter: 2025Q3

REPORT INFORMATION
  Report Type: Spontaneous
  Country: RU (occurrence: RU)
  Receive Date: 20241210
  Receipt Date: 20250812
  Transmission Date: 20251021
  Serious: Yes (Other)
  Sender: NOVARTIS
  Company Number: RU-002147023-NVSC2024RU231198

PATIENT
  Age: 28 Year
  Sex: Male

DRUGS (4)
  1. TERBINAFINE [Suspect]
     Active Substance: TERBINAFINE
     Indication: Onychomycosis
     Route: 065
  2. TERBINAFINE [Suspect]
     Active Substance: TERBINAFINE
     Indication: Fungal infection
  3. ACETAMINOPHEN [Suspect]
     Active Substance: ACETAMINOPHEN
     Indication: Product used for unknown indication
     Route: 065
  4. CLOBETASOL [Suspect]
     Active Substance: CLOBETASOL
     Indication: Acute generalised exanthematous pustulosis
     Route: 065

REACTIONS (13)
  - Acute generalised exanthematous pustulosis [Unknown]
  - Generalised pustular psoriasis [Unknown]
  - Toxic skin eruption [Unknown]
  - Intentional product misuse [Unknown]
  - Rash [Recovered/Resolved]
  - Somnolence [Unknown]
  - Soft tissue swelling [Unknown]
  - Fatigue [Unknown]
  - Chills [Unknown]
  - Papule [Unknown]
  - Skin plaque [Unknown]
  - Asthenia [Unknown]
  - Body temperature increased [Unknown]
